FAERS Safety Report 7640731-3 (Version None)
Quarter: 2011Q3

REPORT INFORMATION
  Report Type: 
  Country: None (occurrence: None)
  Receive Date: 20110721
  Receipt Date: 20110707
  Transmission Date: 20111222
  Serious: Yes (Death, Hospitalization)
  Sender: FDA-Public Use
  Company Number: KV201100108

PATIENT
  Age: 64 Year
  Sex: Female
  Weight: 59 kg

DRUGS (32)
  1. VALIUM [Concomitant]
  2. ACTOS [Concomitant]
  3. OXYCODONE WITH APAP (OXYCODONE HYDROCHLORIDE, PARACETAMOL) [Concomitant]
  4. PROTONIX [Concomitant]
  5. CYANOCOBALAMIN [Concomitant]
  6. FOLIC ACID [Concomitant]
  7. CATAPRES /00171101/ (CLONIDINE) [Concomitant]
  8. INSULIN (INSULIN) [Concomitant]
  9. MORPHINE SULFATE [Suspect]
     Indication: CANCER PAIN
     Dosage: 1-2 TABLETS, BID, ORAL
     Route: 048
     Dates: start: 20080710, end: 20080901
  10. HEPARIN [Concomitant]
  11. ASPIRIN [Concomitant]
  12. BISACODYL (BISACODYL) [Concomitant]
  13. MORPHINE SULFATE INJ [Concomitant]
  14. TYLENOL /00020001/ (PARACETAMOL) [Concomitant]
  15. DECADRON [Concomitant]
  16. NEXIUM [Concomitant]
  17. NORVASC /00972401/ (AMLODIPINE) [Concomitant]
  18. PHENYTOIN [Concomitant]
  19. ACTONEL (RISERONATE SODIUM) [Concomitant]
  20. JEVITY (ELECTROLYTES NOS, FATTY ACIS NOS, GLYCINE MAX SEED OIL, MINERA [Concomitant]
  21. DURAGESIC /00174601/ (FENTANYL) [Concomitant]
  22. SEROQUEL [Concomitant]
  23. NAPROSYN /00256201/ (NAPROXEN) [Concomitant]
  24. LEVAQUIN [Concomitant]
  25. PROCHLORPERAZINE MALEATE [Concomitant]
  26. ALPRAZOLAM [Concomitant]
  27. DEXTROSE [Concomitant]
  28. HYDROMORPHINE (HYDROMORPHONE) [Concomitant]
  29. SERTRALINE HYDROCHLORIDE [Concomitant]
  30. GLUCERNA (AMINO ACIDS NOS, CARTHAMUS TINCTORIUS OIL, FRUCTOSE, GLYCINE [Concomitant]
  31. FEMARA [Concomitant]
  32. MILK OF MAGNESIA (MAGNESIUM HYDROCHLORIDE) [Concomitant]

REACTIONS (28)
  - BREAST CANCER METASTATIC [None]
  - RENAL FAILURE ACUTE [None]
  - AGITATION [None]
  - NAUSEA [None]
  - URINARY TRACT INFECTION [None]
  - FALL [None]
  - SEPSIS [None]
  - HYPERCALCAEMIA OF MALIGNANCY [None]
  - FATIGUE [None]
  - LETHARGY [None]
  - CONFUSIONAL STATE [None]
  - ALTERED STATE OF CONSCIOUSNESS [None]
  - DECREASED APPETITE [None]
  - LEUKOCYTOSIS [None]
  - DISORIENTATION [None]
  - CARDIO-RESPIRATORY ARREST [None]
  - ENCEPHALOPATHY [None]
  - SOMNOLENCE [None]
  - DIARRHOEA [None]
  - HYPOTENSION [None]
  - VOMITING [None]
  - GENERAL PHYSICAL HEALTH DETERIORATION [None]
  - DYSPHAGIA [None]
  - HYPOPHAGIA [None]
  - ACUTE RESPIRATORY FAILURE [None]
  - UNRESPONSIVE TO STIMULI [None]
  - ASTHENIA [None]
  - PNEUMONIA [None]
